FAERS Safety Report 4765685-9 (Version None)
Quarter: 2005Q3

REPORT INFORMATION
  Report Type: 
  Country: None (occurrence: None)
  Receive Date: 20050908
  Receipt Date: 20050908
  Transmission Date: 20060218
  Serious: Yes (Hospitalization, Other)
  Sender: FDA-Public Use
  Company Number: None

PATIENT
  Age: 39 Year
  Sex: Female
  Weight: 88.4514 kg

DRUGS (2)
  1. PROZAC [Suspect]
     Indication: DEPRESSION
     Dosage: 90MG TIME RELEASE 1X WEEKLY PO
     Route: 048
     Dates: start: 20050501, end: 20050725
  2. PROZAC [Suspect]
     Dosage: 20MG DAILY PO
     Route: 048
     Dates: start: 20050501, end: 20050725

REACTIONS (9)
  - ASTHENIA [None]
  - DYSPHORIA [None]
  - FLAT AFFECT [None]
  - INTENTIONAL MISUSE [None]
  - PARENT-CHILD PROBLEM [None]
  - PYROMANIA [None]
  - SELF INJURIOUS BEHAVIOUR [None]
  - SUICIDE ATTEMPT [None]
  - THERMAL BURN [None]
